FAERS Safety Report 8219631-6 (Version None)
Quarter: 2012Q1

REPORT INFORMATION
  Report Type: 
  Country: None (occurrence: None)
  Receive Date: 20120319
  Receipt Date: 20120307
  Transmission Date: 20120608
  Serious: Yes (Hospitalization, Other)
  Sender: FDA-Public Use
  Company Number: NZ-ELI_LILLY_AND_COMPANY-NZ201203002074

PATIENT
  Age: 63 Year
  Sex: Male

DRUGS (2)
  1. ZYPREXA RELPREVV [Suspect]
     Indication: SCHIZOPHRENIA
     Dosage: 405 MG, UNKNOWN
     Route: 030
  2. CLONAZEPAM [Concomitant]
     Dosage: 2 MG, UNK
     Route: 048

REACTIONS (4)
  - BLOOD PRESSURE DECREASED [None]
  - VOMITING [None]
  - UNRESPONSIVE TO STIMULI [None]
  - DYSPNOEA [None]
